FAERS Safety Report 8317641-1 (Version None)
Quarter: 2012Q2

REPORT INFORMATION
  Report Type: 
  Country: None (occurrence: None)
  Receive Date: 20120427
  Receipt Date: 20090618
  Transmission Date: 20120825
  Serious: No
  Sender: FDA-Public Use
  Company Number: US-TEVA-2009007361

PATIENT
  Sex: Female
  Weight: 72.64 kg

DRUGS (1)
  1. NUVIGIL [Suspect]
     Indication: HYPERSOMNIA
     Route: 048
     Dates: start: 20090611

REACTIONS (2)
  - ABDOMINAL PAIN UPPER [None]
  - DRUG PRESCRIBING ERROR [None]
